FAERS Safety Report 4992894-6 (Version None)
Quarter: 2006Q1

REPORT INFORMATION
  Report Type: 
  Country: None (occurrence: None)
  Receive Date: 20060315
  Receipt Date: 20060202
  Transmission Date: 20060701
  Serious: No
  Sender: FDA-Public Use
  Company Number: 2006RL000033

PATIENT
  Sex: Female

DRUGS (1)
  1. OMACOR [Suspect]
     Dosage: 1 GM;PO
     Route: 048

REACTIONS (1)
  - EPISTAXIS [None]
